FAERS Safety Report 24680719 (Version 1)
Quarter: 2024Q4

REPORT INFORMATION
  Report Type: Spontaneous
  Country: US (occurrence: US)
  Receive Date: 20241129
  Receipt Date: 20241129
  Transmission Date: 20250115
  Serious: Yes (Other)
  Sender: BRISTOL-MYERS SQUIBB COMPANY
  Company Number: US-BRISTOL-MYERS SQUIBB COMPANY-2024-181564

PATIENT
  Age: 38 Year
  Sex: Female

DRUGS (1)
  1. ZEPOSIA [Suspect]
     Active Substance: OZANIMOD HYDROCHLORIDE
     Indication: Illness
     Route: 048
     Dates: start: 202408, end: 20241012

REACTIONS (7)
  - Fatigue [Unknown]
  - Depressed level of consciousness [Unknown]
  - Decreased activity [Unknown]
  - Disturbance in attention [Unknown]
  - Pain [Unknown]
  - Sleep disorder [Unknown]
  - Off label use [Unknown]
